APPROVED DRUG PRODUCT: THALOMID
Active Ingredient: THALIDOMIDE
Strength: 150MG
Dosage Form/Route: CAPSULE;ORAL
Application: N020785 | Product #004
Applicant: BRISTOL-MYERS SQUIBB CO
Approved: Jan 10, 2007 | RLD: Yes | RS: No | Type: RX